FAERS Safety Report 8817051 (Version 1)
Quarter: 2012Q4

REPORT INFORMATION
  Report Type: Spontaneous
  Country: US (occurrence: None)
  Receive Date: 20121003
  Receipt Date: 20121003
  Transmission Date: 20130627
  Serious: No
  Sender: FDA-Public Use
  Company Number: None

PATIENT
  Age: 48 Year
  Sex: Male

DRUGS (1)
  1. METHYLPHENIDATE ER [Suspect]
     Dosage: 1 capsule once every morning po
     Route: 048

REACTIONS (1)
  - Drug ineffective [None]
